FAERS Safety Report 7825043-7 (Version None)
Quarter: 2011Q4

REPORT INFORMATION
  Report Type: 
  Country: None (occurrence: None)
  Receive Date: 20111019
  Receipt Date: 20110630
  Transmission Date: 20120403
  Serious: No
  Sender: FDA-Public Use
  Company Number: US-BRISTOL-MYERS SQUIBB COMPANY-15671167

PATIENT
  Age: 78 Year
  Sex: Female
  Weight: 81 kg

DRUGS (4)
  1. LANTUS [Concomitant]
  2. HUMALOG [Concomitant]
  3. AVALIDE [Suspect]
     Dosage: 1DF:300/12.5MG  RX NUMBER 13636515  BATCH NO:1A045A
  4. XALATAN [Concomitant]

REACTIONS (2)
  - BLOOD PRESSURE FLUCTUATION [None]
  - SWELLING [None]
